FAERS Safety Report 16153571 (Version 2)
Quarter: 2019Q2

REPORT INFORMATION
  Report Type: Spontaneous
  Country: US (occurrence: US)
  Receive Date: 20190403
  Receipt Date: 20190503
  Transmission Date: 20190711
  Serious: Yes (Other)
  Sender: FDA-Public Use
  Company Number: US-SA-2018SA219127

PATIENT
  Age: 57 Year
  Sex: Female

DRUGS (1)
  1. DUPIXENT [Suspect]
     Active Substance: DUPILUMAB
     Dosage: UNK, UNK
     Route: 058
     Dates: start: 201403

REACTIONS (3)
  - Neuropathy peripheral [Unknown]
  - Blister [Unknown]
  - Product dose omission [Unknown]

NARRATIVE: CASE EVENT DATE: 20190325
